FAERS Safety Report 5872999-8 (Version None)
Quarter: 2008Q3

REPORT INFORMATION
  Report Type: 
  Country: None (occurrence: None)
  Receive Date: 20080905
  Receipt Date: 20080825
  Transmission Date: 20090109
  Serious: Yes (Other)
  Sender: FDA-Public Use
  Company Number: JP-PFIZER INC-2008072366

PATIENT
  Age: 65 Year
  Sex: Male

DRUGS (16)
  1. LIPITOR [Suspect]
     Dosage: DAILY DOSE:10MG
     Route: 048
  2. MYSLEE [Suspect]
     Dosage: DAILY DOSE:5MG
     Route: 048
     Dates: start: 20080717, end: 20080821
  3. DEPAS [Concomitant]
     Dosage: DAILY DOSE:1MG
     Route: 048
  4. PREDONINE [Concomitant]
     Dosage: DAILY DOSE:5MG
     Route: 048
  5. NORVASC [Concomitant]
     Dosage: DAILY DOSE:5MG
     Route: 048
  6. BISOLVON [Concomitant]
     Route: 048
  7. SOLON [Concomitant]
     Route: 048
  8. RISEDRONATE SODIUM HYDRATE [Concomitant]
     Dosage: DAILY DOSE:17.5MG
     Route: 048
  9. MAGNESIUM OXIDE [Concomitant]
     Dosage: DAILY DOSE:3MG
     Route: 048
  10. ADJUST-A [Concomitant]
     Dosage: DAILY DOSE:80MG
     Route: 048
  11. NAUZELIN [Concomitant]
     Dosage: DAILY DOSE:20MG
     Route: 048
  12. MS CONTIN [Concomitant]
     Dosage: DAILY DOSE:120MG
     Route: 048
  13. ANPEC [Concomitant]
     Dosage: DAILY DOSE:80MG
     Route: 054
  14. VOLTAREN [Concomitant]
     Dosage: DAILY DOSE:100MG
     Route: 054
  15. SALMETEROL XINAFOATE [Concomitant]
     Dosage: DAILY DOSE:250MG
     Route: 055
  16. GLYCEOL [Concomitant]
     Dosage: DAILY DOSE:600MG

REACTIONS (1)
  - CONFUSIONAL STATE [None]
